FAERS Safety Report 9510609 (Version 1)
Quarter: 2013Q3

REPORT INFORMATION
  Report Type: Spontaneous
  Country: US (occurrence: US)
  Receive Date: 20130909
  Receipt Date: 20130909
  Transmission Date: 20140515
  Serious: Yes (Life-Threatening, Other)
  Sender: FDA-Public Use
  Company Number: US-ACTAVIS-2013-15424

PATIENT
  Age: 26 Year
  Sex: Female
  Weight: 53 kg

DRUGS (3)
  1. FENTANYL [Suspect]
     Indication: ANALGESIC THERAPY
     Dosage: 25, ?G, SINGLE
     Route: 028
  2. BUPIVACAINE (UNKNOWN) [Suspect]
     Indication: ANALGESIC THERAPY
     Dosage: 2.5 MG, SINGLE
     Route: 028
  3. LIDOCAINE HYDROCHLORIDE 1% WITH EPINEPHRINE (WATSON LABORATORIES) [Suspect]
     Indication: LOCAL ANAESTHESIA
     Dosage: 15,?G,SINGLE
     Route: 028

REACTIONS (3)
  - Premature separation of placenta [Recovered/Resolved]
  - Condition aggravated [Recovered/Resolved]
  - Uterine hypertonus [Recovered/Resolved]
